FAERS Safety Report 15983597 (Version 1)
Quarter: 2019Q1

REPORT INFORMATION
  Report Type: Spontaneous
  Country: IT (occurrence: IT)
  Receive Date: 20190220
  Receipt Date: 20190220
  Transmission Date: 20190418
  Serious: Yes (Other)
  Sender: FDA-Public Use
  Company Number: IT-AUROBINDO-AUR-APL-2019-008402

PATIENT

DRUGS (3)
  1. CARBOPLATIN CONCENTRATE FOR SOLUTION FOR INFUSION [Suspect]
     Active Substance: CARBOPLATIN
     Indication: ADENOCARCINOMA GASTRIC
     Dosage: UNK
     Route: 065
  2. TRASTUZUMAB. [Suspect]
     Active Substance: TRASTUZUMAB
     Indication: ADENOCARCINOMA GASTRIC
     Dosage: UNK
     Route: 065
  3. FLUOROURACIL. [Suspect]
     Active Substance: FLUOROURACIL
     Indication: ADENOCARCINOMA GASTRIC
     Dosage: UNK
     Route: 065

REACTIONS (2)
  - Pancytopenia [Recovered/Resolved]
  - Hyperpyrexia [Recovered/Resolved]

NARRATIVE: CASE EVENT DATE: 20190202
